FAERS Safety Report 5456352-7 (Version None)
Quarter: 2007Q3

REPORT INFORMATION
  Report Type: 
  Country: None (occurrence: None)
  Receive Date: 20070918
  Receipt Date: 20061116
  Transmission Date: 20080115
  Serious: No
  Sender: FDA-Public Use
  Company Number: US-ASTRAZENECA-2006UW24762

PATIENT
  Age: 31 Year
  Sex: Female

DRUGS (4)
  1. SEROQUEL [Suspect]
     Route: 048
     Dates: start: 20061007
  2. SEROQUEL [Suspect]
     Route: 048
  3. GLUCOPHAGE [Concomitant]
  4. TOPROL-XL [Concomitant]
     Route: 048

REACTIONS (4)
  - ANOREXIA [None]
  - ANXIETY [None]
  - CRYING [None]
  - DELUSION [None]
